FAERS Safety Report 8445572-5 (Version None)
Quarter: 2012Q2

REPORT INFORMATION
  Report Type: 
  Country: None (occurrence: None)
  Receive Date: 20120618
  Receipt Date: 20120605
  Transmission Date: 20120825
  Serious: No
  Sender: FDA-Public Use
  Company Number: US-JNJFOC-20120603734

PATIENT
  Sex: Female
  Weight: 64.86 kg

DRUGS (7)
  1. UNKNOWN MEDICATION [Concomitant]
     Indication: MALIGNANT MELANOMA
     Route: 048
  2. FENTANYL-100 [Suspect]
     Indication: MALIGNANT MELANOMA
     Dosage: NDC-0781-7242-55
     Route: 062
     Dates: start: 20120602
  3. ZOFRAN [Concomitant]
     Indication: NAUSEA
     Route: 048
  4. OXYCONTIN [Concomitant]
     Indication: PAIN
     Route: 048
  5. CITALOPRAM HYDROBROMIDE [Concomitant]
     Indication: DEPRESSION
     Route: 048
  6. FENTANYL-100 [Suspect]
     Indication: PAIN
     Dosage: NDC-0781-7242-55
     Route: 062
     Dates: start: 20120602
  7. CITALOPRAM HYDROBROMIDE [Concomitant]
     Indication: ANXIETY
     Route: 048

REACTIONS (1)
  - WRONG TECHNIQUE IN DRUG USAGE PROCESS [None]
